FAERS Safety Report 8531502-4 (Version None)
Quarter: 2012Q3

REPORT INFORMATION
  Report Type: 
  Country: None (occurrence: None)
  Receive Date: 20120723
  Receipt Date: 20120711
  Transmission Date: 20120928
  Serious: Yes (Other)
  Sender: FDA-Public Use
  Company Number: TW-UCBSA-062031

PATIENT
  Age: 50 Year
  Sex: Female

DRUGS (1)
  1. KEPPRA [Suspect]
     Dosage: UNKNOWN
     Route: 042

REACTIONS (1)
  - LEUKOPENIA [None]
